FAERS Safety Report 8308493-4 (Version None)
Quarter: 2012Q2

REPORT INFORMATION
  Report Type: 
  Country: None (occurrence: None)
  Receive Date: 20120424
  Receipt Date: 20120418
  Transmission Date: 20120825
  Serious: Yes (Life-Threatening, Hospitalization, Other)
  Sender: FDA-Public Use
  Company Number: SE-BRISTOL-MYERS SQUIBB COMPANY-16536443

PATIENT
  Age: 79 Year
  Sex: Male

DRUGS (8)
  1. GLYTRIN [Concomitant]
  2. WARFARIN SODIUM [Concomitant]
     Indication: ATRIAL FIBRILLATION
  3. ASPIRIN [Concomitant]
  4. LANTUS [Concomitant]
     Indication: DIABETES MELLITUS
  5. ESOMEPRAZOLE MAGNESIUM [Concomitant]
  6. METFORMIN HCL [Suspect]
     Indication: DIABETES MELLITUS
     Dates: end: 20111218
  7. IRBESARTAN [Suspect]
     Indication: HYPERTENSION
     Route: 048
     Dates: end: 20111218
  8. FUROSEMIDE [Concomitant]

REACTIONS (4)
  - LACTIC ACIDOSIS [None]
  - CARDIAC ARREST [None]
  - DIVERTICULITIS MECKEL'S [None]
  - RENAL FAILURE ACUTE [None]
